FAERS Safety Report 25473479 (Version 1)
Quarter: 2025Q2

REPORT INFORMATION
  Report Type: Spontaneous
  Country: US (occurrence: None)
  Receive Date: 20250624
  Receipt Date: 20250624
  Transmission Date: 20250716
  Serious: Yes (Hospitalization)
  Sender: FDA-CTU
  Company Number: None

PATIENT
  Age: 59 Year
  Sex: Female
  Weight: 162.3 kg

DRUGS (1)
  1. MEGACE [Suspect]
     Active Substance: MEGESTROL ACETATE
     Dates: end: 20250614

REACTIONS (3)
  - Pain in extremity [None]
  - Arthralgia [None]
  - Joint effusion [None]

NARRATIVE: CASE EVENT DATE: 20250614
